FAERS Safety Report 5978998-X (Version None)
Quarter: 2008Q4

REPORT INFORMATION
  Report Type: 
  Country: None (occurrence: None)
  Receive Date: 20081126
  Receipt Date: 20081114
  Transmission Date: 20090506
  Serious: Yes (Death, Hospitalization)
  Sender: FDA-Public Use
  Company Number: 2008002978

PATIENT
  Age: 71 Year
  Sex: Male

DRUGS (10)
  1. EERLOTINIB (ERLOTINIB) (TABLET) (ERLOTINIB) [Suspect]
     Indication: NON-SMALL CELL LUNG CANCER
     Dosage: 150 MG, QD, ORAL
     Route: 048
     Dates: start: 20080304, end: 20080529
  2. EERLOTINIB (ERLOTINIB) (TABLET) (ERLOTINIB) [Suspect]
     Indication: NON-SMALL CELL LUNG CANCER
     Dosage: 150 MG, QD, ORAL
     Route: 048
     Dates: start: 20080611
  3. PREDNISONA [Concomitant]
  4. SALBUTAMOL (SALBUTAMOL) [Concomitant]
  5. OMEPRAZOLE [Concomitant]
  6. IPRATROPIO BROMURO [Concomitant]
  7. FLUTICASONA [Concomitant]
  8. NOVOMIX 30 [Concomitant]
  9. SERETIDE (SERETIDE) [Concomitant]
  10. SEGURIL (FUROSEMIDE) [Concomitant]

REACTIONS (12)
  - BRONCHOSPASM [None]
  - COUGH [None]
  - DYSPNOEA [None]
  - HYPERGLYCAEMIA [None]
  - HYPOXIA [None]
  - LOCALISED INFECTION [None]
  - NECROSIS OF BRONCHIOLI [None]
  - ORAL HERPES [None]
  - PERFORMANCE STATUS DECREASED [None]
  - PNEUMONITIS [None]
  - RADIATION PNEUMONITIS [None]
  - STAPHYLOCOCCAL INFECTION [None]
